FAERS Safety Report 6671416-8 (Version None)
Quarter: 2010Q2

REPORT INFORMATION
  Report Type: 
  Country: None (occurrence: None)
  Receive Date: 20100407
  Receipt Date: 20100401
  Transmission Date: 20101027
  Serious: Yes (Other)
  Sender: FDA-Public Use
  Company Number: DE-SANOFI-AVENTIS-2010SA018903

PATIENT
  Age: 41 Year
  Sex: Female

DRUGS (1)
  1. ZOLPIDEM [Suspect]
     Route: 048

REACTIONS (4)
  - ASPIRATION [None]
  - CHOKING [None]
  - HYPERVENTILATION [None]
  - LOSS OF CONSCIOUSNESS [None]
